FAERS Safety Report 5168409-9 (Version None)
Quarter: 2006Q4

REPORT INFORMATION
  Report Type: 
  Country: None (occurrence: None)
  Receive Date: 20061208
  Receipt Date: 20061201
  Transmission Date: 20070319
  Serious: Yes (Hospitalization)
  Sender: FDA-Public Use
  Company Number: JP-ROCHE-473355

PATIENT
  Age: 77 Year
  Sex: Male

DRUGS (5)
  1. PANALDINE [Suspect]
     Route: 048
     Dates: start: 20061110, end: 20061115
  2. EUGLUCON [Suspect]
     Indication: DIABETES MELLITUS
     Route: 065
  3. DIOVAN [Suspect]
     Indication: HYPERTENSION
     Route: 065
  4. BUFFERIN [Suspect]
     Indication: THROMBOSIS PROPHYLAXIS
     Route: 065
     Dates: start: 20061110
  5. OMEPRAL [Suspect]
     Indication: DRUG USE FOR UNKNOWN INDICATION
     Route: 065

REACTIONS (2)
  - ACUTE MYOCARDIAL INFARCTION [None]
  - INTERSTITIAL LUNG DISEASE [None]
